FAERS Safety Report 9853652 (Version 2)
Quarter: 2014Q1

REPORT INFORMATION
  Report Type: Report from Study
  Country: US (occurrence: US)
  Receive Date: 20140129
  Receipt Date: 20140129
  Transmission Date: 20141002
  Serious: Yes (Other)
  Sender: FDA-Public Use
  Company Number: US-BRISTOL-MYERS SQUIBB COMPANY-19980457

PATIENT
  Age: 53 Year
  Sex: Female
  Weight: 90.7 kg

DRUGS (2)
  1. ABATACEPT SUBQ INJECTION 125MG/ML [Suspect]
     Indication: RHEUMATOID ARTHRITIS
     Dosage: HER LAST INJECTION WAS ON 30DEC2013, 10JAN2014
     Route: 058
  2. NEURONTIN [Concomitant]
     Dosage: TABS

REACTIONS (4)
  - Blindness [Unknown]
  - Pain [Unknown]
  - Fibromyalgia [Unknown]
  - Product quality issue [Unknown]
